FAERS Safety Report 7506984-7 (Version None)
Quarter: 2011Q2

REPORT INFORMATION
  Report Type: 
  Country: None (occurrence: None)
  Receive Date: 20110526
  Receipt Date: 20110518
  Transmission Date: 20111010
  Serious: Yes (Life-Threatening, Hospitalization, Other)
  Sender: FDA-Public Use
  Company Number: DE-UCBSA-000247

PATIENT
  Sex: Male
  Weight: 100 kg

DRUGS (7)
  1. NEUPRO [Suspect]
     Dates: start: 20071101, end: 20080129
  2. RAMIPRIL RATIO [Concomitant]
     Indication: HYPERTENSION
     Dates: end: 20081128
  3. NEUPRO [Suspect]
     Dates: start: 20080130, end: 20100722
  4. SIMVA TAD [Concomitant]
     Indication: HYPERCHOLESTEROLAEMIA
     Dates: end: 20070901
  5. SIMVA TAD [Concomitant]
     Dates: start: 20081128
  6. METOPROLOL RATION [Concomitant]
     Indication: HYPERTENSION
     Dates: start: 20071001, end: 20081128
  7. NEUPRO [Suspect]
     Indication: PARKINSON'S DISEASE
     Dates: start: 20071025, end: 20071031

REACTIONS (2)
  - PULMONARY EMBOLISM [None]
  - DEEP VEIN THROMBOSIS [None]
